FAERS Safety Report 8297938-4 (Version None)
Quarter: 2012Q2

REPORT INFORMATION
  Report Type: 
  Country: None (occurrence: None)
  Receive Date: 20120419
  Receipt Date: 20120410
  Transmission Date: 20120825
  Serious: Yes (Hospitalization)
  Sender: FDA-Public Use
  Company Number: US-BAYER-2011-086426

PATIENT
  Age: 36 Year
  Sex: Female
  Weight: 83.9 kg

DRUGS (7)
  1. APROXIN [Concomitant]
     Indication: MIGRAINE
     Dosage: UNK, AS NEEDED
     Dates: start: 20100101
  2. FLUNISOLIDE NASAL SPRAY [Concomitant]
     Dosage: 2 SPRAYS IN EACH NOSTRIL BID
  3. SIMETHICONE [Concomitant]
     Dosage: 1-2 TABLETS AFTER MEALS AND AT BED TIME
  4. HYDROCODONE BITARTRATE AND ACETAMINOPHEN [Concomitant]
     Indication: PAIN
     Dosage: EVERY 6 HOURS, QID
  5. YASMIN [Suspect]
     Indication: ACNE
     Dosage: UNK
     Dates: start: 20070801, end: 20100301
  6. OMEPRAZOLE [Concomitant]
     Dosage: 20 MG, QD
  7. RETIN A TOPICAL GEL [Concomitant]
     Dosage: ONCE DAILY AT BEDTIME

REACTIONS (4)
  - PULMONARY EMBOLISM [None]
  - PAIN [None]
  - INJURY [None]
  - MENTAL DISORDER [None]
